FAERS Safety Report 9070297 (Version 1)
Quarter: 2013Q1

REPORT INFORMATION
  Report Type: Report from Study
  Country: US (occurrence: US)
  Receive Date: 20130129
  Receipt Date: 20130129
  Transmission Date: 20140127
  Serious: Yes (Other)
  Sender: FDA-Public Use
  Company Number: US-ABBOTT-12P-163-0925048-00

PATIENT
  Age: 52 None
  Sex: Female
  Weight: 112.14 kg

DRUGS (20)
  1. HUMIRA 40 MG/0.8 ML PEN [Suspect]
     Indication: PSORIASIS
     Dates: start: 20110124, end: 201105
  2. HUMIRA 40 MG/0.8 ML PEN [Suspect]
     Dates: start: 201110, end: 201203
  3. HUMIRA 40 MG/0.8 ML PEN [Suspect]
     Dates: start: 20120417
  4. LEVOTHYROXINE [Concomitant]
     Indication: HYPOTHYROIDISM
     Dosage: 225 MG DAILY
  5. HYDROCODONE [Concomitant]
     Indication: PAIN
     Dosage: 10/500,3 TO 4 TIMES/DAY (MAX:4 TIMES/DAY
  6. ATENOLOL [Concomitant]
     Indication: HYPERTENSION
     Dosage: 50 MG DAILY
  7. METHYLPRED [Concomitant]
     Indication: DYSPNOEA
     Dosage: 4 MG ONCE EVERY 12 HRS
  8. CYMBALTA [Concomitant]
     Indication: DEPRESSION
     Dosage: 150 MG DAILY
  9. CRESTOR [Concomitant]
     Indication: BLOOD CHOLESTEROL INCREASED
     Dosage: 20 MG DAILY AT BEDTIME
  10. MIRAPEX [Concomitant]
     Indication: RESTLESS LEGS SYNDROME
     Dosage: 1 MG DAILY AT BEDTIME
  11. LITHIUM [Concomitant]
     Indication: ANXIETY
  12. LASIX [Concomitant]
     Indication: FLUID RETENTION
     Dosage: 80 MG DAILY
  13. GABAPENTIN [Concomitant]
     Indication: PAIN
     Dosage: 1200 MG DAILY
  14. SINGULAR [Concomitant]
     Indication: DYSPNOEA
     Dosage: 10 MG DAILY AT BEDTIME
  15. PROAIR [Concomitant]
     Indication: ASTHMA
  16. PROAIR [Concomitant]
     Indication: CHRONIC OBSTRUCTIVE PULMONARY DISEASE
  17. PULMICORT [Concomitant]
     Indication: ASTHMA
  18. ADVAIR [Concomitant]
     Indication: CHRONIC OBSTRUCTIVE PULMONARY DISEASE
  19. ALBUTEROL [Concomitant]
     Indication: DYSPNOEA
     Dosage: NEBULIZER, FOUR TIMES A DAY AS NEEDED
  20. OXYGEN [Concomitant]
     Indication: CHRONIC OBSTRUCTIVE PULMONARY DISEASE

REACTIONS (5)
  - Knee operation [Recovering/Resolving]
  - Pneumonia [Recovering/Resolving]
  - Psoriasis [Not Recovered/Not Resolved]
  - White blood cell count increased [Recovering/Resolving]
  - Cough [Recovering/Resolving]
